FAERS Safety Report 9618511 (Version 1)
Quarter: 2013Q4

REPORT INFORMATION
  Report Type: Spontaneous
  Country: US (occurrence: US)
  Receive Date: 20131014
  Receipt Date: 20131014
  Transmission Date: 20140711
  Serious: No
  Sender: FDA-Public Use
  Company Number: US-PFIZER INC-2013290051

PATIENT
  Sex: Female

DRUGS (1)
  1. ADVIL [Suspect]
     Dosage: UNK

REACTIONS (4)
  - Drug interaction [Unknown]
  - Malaise [Unknown]
  - Dizziness [Unknown]
  - Heart rate decreased [Unknown]
